FAERS Safety Report 15328372 (Version 1)
Quarter: 2018Q3

REPORT INFORMATION
  Report Type: Spontaneous
  Country: FR (occurrence: FR)
  Receive Date: 20180829
  Receipt Date: 20180829
  Transmission Date: 20181010
  Serious: Yes (Hospitalization)
  Sender: FDA-Public Use
  Company Number: FR-TEVA-2018-FR-947950

PATIENT
  Age: 48 Year
  Sex: Female
  Weight: 55 kg

DRUGS (2)
  1. AMOXICILLINE [Suspect]
     Active Substance: AMOXICILLIN
     Indication: DENTAL CARE
     Route: 048
     Dates: end: 20180709
  2. IBUPROFENE [Suspect]
     Active Substance: IBUPROFEN
     Route: 048

REACTIONS (2)
  - Renal failure [Recovered/Resolved]
  - Neutropenia [Recovered/Resolved]

NARRATIVE: CASE EVENT DATE: 20180722
